FAERS Safety Report 20115137 (Version 3)
Quarter: 2021Q4

REPORT INFORMATION
  Report Type: Report from Study
  Country: CO (occurrence: CO)
  Receive Date: 20211125
  Receipt Date: 20211221
  Transmission Date: 20220303
  Serious: Yes (Hospitalization, Other)
  Sender: FDA-Public Use
  Company Number: CO-ABBVIE-21K-036-4175577-00

PATIENT
  Age: 45 Year
  Sex: Female
  Weight: 46 kg

DRUGS (2)
  1. ZEMPLAR [Suspect]
     Active Substance: PARICALCITOL
     Indication: Hyperparathyroidism secondary
     Dosage: FREQUENCY:POST DIALYSIS
     Route: 042
     Dates: start: 20160120, end: 20211112
  2. ZEMPLAR [Suspect]
     Active Substance: PARICALCITOL
     Indication: Chronic kidney disease

REACTIONS (4)
  - Renal cyst [Recovered/Resolved]
  - Polycystic liver disease [Recovering/Resolving]
  - Gastrointestinal disorder [Recovering/Resolving]
  - Kidney enlargement [Recovering/Resolving]

NARRATIVE: CASE EVENT DATE: 20211113
